FAERS Safety Report 17653029 (Version 1)
Quarter: 2020Q2

REPORT INFORMATION
  Report Type: Spontaneous
  Country: US (occurrence: US)
  Receive Date: 20200409
  Receipt Date: 20200409
  Transmission Date: 20200713
  Serious: No
  Sender: FDA-Public Use
  Company Number: US-TEVA-2020-US-1220312

PATIENT

DRUGS (1)
  1. LMATINIB MESYLATE [Suspect]
     Active Substance: IMATINIB MESYLATE
     Route: 065

REACTIONS (3)
  - Fatigue [Unknown]
  - Weight increased [Unknown]
  - Product physical issue [Unknown]
